FAERS Safety Report 6998016-4 (Version None)
Quarter: 2010Q3

REPORT INFORMATION
  Report Type: 
  Country: None (occurrence: None)
  Receive Date: 20100920
  Receipt Date: 20071017
  Transmission Date: 20110219
  Serious: Yes (Other)
  Sender: FDA-Public Use
  Company Number: US-ASTRAZENECA-2006UW21845

PATIENT
  Age: 64 Year
  Sex: Female
  Weight: 61.7 kg

DRUGS (8)
  1. SEROQUEL [Suspect]
     Indication: DEPRESSION
     Route: 048
     Dates: start: 20000326
  2. SEROQUEL [Suspect]
     Indication: SCHIZOPHRENIA
     Route: 048
     Dates: start: 20000326
  3. SEROQUEL [Suspect]
     Indication: BIPOLAR DISORDER
     Route: 048
     Dates: start: 20000326
  4. SEROQUEL [Suspect]
     Route: 048
     Dates: start: 20000612
  5. SEROQUEL [Suspect]
     Route: 048
     Dates: start: 20000612
  6. SEROQUEL [Suspect]
     Route: 048
     Dates: start: 20000612
  7. DEPAKOTE [Concomitant]
     Dates: start: 20000612
  8. ZOLOFT [Concomitant]
     Dates: start: 20000612

REACTIONS (6)
  - DIABETES MELLITUS [None]
  - FLANK PAIN [None]
  - GLYCOSURIA [None]
  - HYPERGLYCAEMIA [None]
  - PANCREATITIS [None]
  - TYPE 2 DIABETES MELLITUS [None]
